FAERS Safety Report 19487352 (Version 1)
Quarter: 2021Q3

REPORT INFORMATION
  Report Type: Spontaneous
  Country: US (occurrence: US)
  Receive Date: 20210702
  Receipt Date: 20210702
  Transmission Date: 20211014
  Serious: Yes (Other)
  Sender: FDA-Public Use
  Company Number: US-009507513-2106USA006164

PATIENT
  Sex: Female

DRUGS (4)
  1. CISPLATIN. [Suspect]
     Active Substance: CISPLATIN
     Dosage: UNK
  2. PADCEV [Suspect]
     Active Substance: ENFORTUMAB VEDOTIN-EJFV
     Dosage: UNK
  3. KEYTRUDA [Suspect]
     Active Substance: PEMBROLIZUMAB
     Indication: TRANSITIONAL CELL CARCINOMA
     Dosage: UNKNOWN DOSE, EVERY 3 WEEKS
     Route: 042
     Dates: start: 20201230
  4. DEXAMETHASONE. [Concomitant]
     Active Substance: DEXAMETHASONE

REACTIONS (9)
  - Asthma [Unknown]
  - Asthenia [Unknown]
  - Alopecia [Unknown]
  - Taste disorder [Unknown]
  - Neuropathy peripheral [Unknown]
  - Weight increased [Unknown]
  - Malignant neoplasm progression [Unknown]
  - Fatigue [Unknown]
  - Dry mouth [Unknown]
